FAERS Safety Report 23742880 (Version 3)
Quarter: 2024Q2

REPORT INFORMATION
  Report Type: Spontaneous
  Country: JP (occurrence: JP)
  Receive Date: 20240415
  Receipt Date: 20240424
  Transmission Date: 20240716
  Serious: Yes (Hospitalization, Other)
  Sender: FDA-Public Use
  Company Number: JP-MLMSERVICE-20240403-PI001301-00206-1

PATIENT
  Age: 69 Year
  Sex: Male
  Weight: 43 kg

DRUGS (13)
  1. LORAZEPAM [Suspect]
     Active Substance: LORAZEPAM
     Indication: Insomnia
     Dosage: 1 DF, AS NEEDED
  2. QUETIAPINE FUMARATE [Suspect]
     Active Substance: QUETIAPINE FUMARATE
     Dosage: BEFORE BEDTIME
  3. QUETIAPINE FUMARATE [Suspect]
     Active Substance: QUETIAPINE FUMARATE
     Dosage: BEFORE BEDTIME
  4. OLANZAPINE [Suspect]
     Active Substance: OLANZAPINE
     Dosage: BEFORE BEDTIME
  5. BROTIZOLAM [Suspect]
     Active Substance: BROTIZOLAM
     Dosage: BEFORE BEDTIME
  6. NITRAZEPAM [Suspect]
     Active Substance: NITRAZEPAM
     Dosage: BEFORE BEDTIME
  7. ESZOPICLONE [Suspect]
     Active Substance: ESZOPICLONE
     Indication: Insomnia
     Dosage: BEFORE BEDTIME
  8. ESZOPICLONE [Suspect]
     Active Substance: ESZOPICLONE
     Dosage: FOR INSOMNIA AS NEEDED
  9. ZOPICLONE [Suspect]
     Active Substance: ZOPICLONE
     Dosage: BEFORE BEDTIME
  10. LITHIUM CARBONATE [Suspect]
     Active Substance: LITHIUM CARBONATE
     Dosage: AFTER BREAKFAST, LUNCH, AND DINNER
  11. LITHIUM CARBONATE [Suspect]
     Active Substance: LITHIUM CARBONATE
     Dosage: AFTER DINNER.
  12. LANSOPRAZOLE [Concomitant]
     Active Substance: LANSOPRAZOLE
     Dosage: AFTER BREAKFAST
  13. VALPROATE SODIUM [Concomitant]
     Active Substance: VALPROATE SODIUM
     Dosage: FREQ:8 H;4 TABLETS AFTER BREAKFAST, LUNCH, AND DINNER

REACTIONS (5)
  - Foreign body aspiration [Recovering/Resolving]
  - Pneumonia [Recovering/Resolving]
  - Bronchial obstruction [Recovering/Resolving]
  - Dysphagia [Recovering/Resolving]
  - Somnolence [Recovering/Resolving]
